FAERS Safety Report 8504466-7 (Version None)
Quarter: 2012Q3

REPORT INFORMATION
  Report Type: 
  Country: None (occurrence: None)
  Receive Date: 20120711
  Receipt Date: 20120706
  Transmission Date: 20120928
  Serious: Yes (Other)
  Sender: FDA-Public Use
  Company Number: US-PFIZER INC-2012162667

PATIENT
  Sex: Male
  Weight: 69.8 kg

DRUGS (9)
  1. PREDNISONE [Concomitant]
     Dosage: 20 MG, 1X/DAY
  2. FUROSEMIDE [Concomitant]
     Dosage: 40 MG, 1X/DAY
  3. POTASSIUM CHLORIDE [Concomitant]
     Dosage: 20 MEQ, 1X/DAY
     Route: 048
  4. TAMSULOSIN HYDROCHLORIDE [Concomitant]
     Dosage: 4 MG, 1X/DAY
  5. PERCOCET [Concomitant]
     Indication: ANALGESIC THERAPY
     Dosage: 5/325, MG, EVERY FOUR HOURS
  6. METOPROLOL [Concomitant]
     Dosage: 25 MG, 1X/DAY
  7. ACCUPRIL [Suspect]
     Dosage: UNK
     Dates: start: 20070101, end: 20120201
  8. XANAX [Concomitant]
     Dosage: 0.25 MG, 3X/DAY
  9. ALDACTONE [Concomitant]
     Dosage: 25 MG, 1X/DAY

REACTIONS (3)
  - URINARY TRACT INFECTION [None]
  - MYOCARDIAL INFARCTION [None]
  - PROSTATE CANCER STAGE IV [None]
